FAERS Safety Report 8080703-0 (Version None)
Quarter: 2012Q1

REPORT INFORMATION
  Report Type: 
  Country: None (occurrence: None)
  Receive Date: 20120130
  Receipt Date: 20120124
  Transmission Date: 20120608
  Serious: Yes (Death, Hospitalization)
  Sender: FDA-Public Use
  Company Number: PHEH2012US000663

PATIENT
  Sex: Female

DRUGS (2)
  1. SANDOSTATIN LAR [Suspect]
     Dosage: 30 MG, QMO
  2. STEROIDS NOS [Concomitant]
     Dosage: UNK

REACTIONS (11)
  - CELLULITIS [None]
  - ACUTE RESPIRATORY DISTRESS SYNDROME [None]
  - HEPATORENAL SYNDROME [None]
  - LUNG INFILTRATION [None]
  - PLATELET FUNCTION TEST ABNORMAL [None]
  - DEATH [None]
  - RENAL FAILURE [None]
  - GASTROINTESTINAL HAEMORRHAGE [None]
  - HYPOTENSION [None]
  - MULTI-ORGAN FAILURE [None]
  - AZOTAEMIA [None]
